FAERS Safety Report 18211128 (Version 2)
Quarter: 2020Q3

REPORT INFORMATION
  Report Type: Spontaneous
  Country: US (occurrence: US)
  Receive Date: 20200830
  Receipt Date: 20200901
  Transmission Date: 20201103
  Serious: Yes (Death)
  Sender: FDA-Public Use
  Company Number: US-ROCHE-2667046

PATIENT
  Sex: Female

DRUGS (1)
  1. ESBRIET [Suspect]
     Active Substance: PIRFENIDONE
     Indication: PULMONARY HAEMOSIDEROSIS
     Dosage: TAKE 2 CAPSULE BY MOUTH THREE TIMES A DAY
     Route: 048
     Dates: start: 20161213, end: 20200801

REACTIONS (4)
  - Intentional product use issue [Unknown]
  - Off label use [Unknown]
  - No adverse event [Unknown]
  - Death [Fatal]
